FAERS Safety Report 24109646 (Version 1)
Quarter: 2024Q3

REPORT INFORMATION
  Report Type: Spontaneous
  Country: US (occurrence: None)
  Receive Date: 20240717
  Receipt Date: 20240717
  Transmission Date: 20241016
  Serious: Yes (Other)
  Sender: Public
  Company Number: None

PATIENT
  Age: 66 Year
  Sex: Female
  Weight: 62.6 kg

DRUGS (1)
  1. DEXLANSOPRAZOLE [Suspect]
     Active Substance: DEXLANSOPRAZOLE
     Indication: Gastrooesophageal reflux disease
     Dosage: 1 TABLET ONCE A DAY ORALLY
     Route: 048
     Dates: start: 202405

REACTIONS (3)
  - Urticaria [None]
  - Pruritus [None]
  - Vomiting [None]

NARRATIVE: CASE EVENT DATE: 20240509
